FAERS Safety Report 19207232 (Version 2)
Quarter: 2021Q2

REPORT INFORMATION
  Report Type: Spontaneous
  Country: DE (occurrence: DE)
  Receive Date: 20210501
  Receipt Date: 20210505
  Transmission Date: 20210717
  Serious: Yes (Death, Other)
  Sender: FDA-Public Use
  Company Number: DE-TEVA-2021-DE-1905868

PATIENT
  Age: 35 Year
  Sex: Female
  Weight: 80 kg

DRUGS (9)
  1. SOLIAN [Interacting]
     Active Substance: AMISULPRIDE
     Indication: ANXIETY
     Dosage: 200 MILLIGRAM DAILY;  1?0?1
     Route: 048
     Dates: start: 20200731
  2. PROMETHAZINE [Interacting]
     Active Substance: PROMETHAZINE HYDROCHLORIDE
     Indication: ACUTE PSYCHOSIS
     Dosage: 25 MG 1 HOUR MAX 44X / 24 H 4 H
     Route: 048
     Dates: start: 20200731
  3. QUETIAPIN [Suspect]
     Active Substance: QUETIAPINE
     Indication: ACUTE PSYCHOSIS
     Dosage: 300 MILLIGRAM DAILY;  0?0?0?1
     Route: 048
     Dates: start: 2021
  4. METO?SUCCINAT [Interacting]
     Active Substance: METOPROLOL SUCCINATE
     Indication: ESSENTIAL HYPERTENSION
  5. SOLIAN [Interacting]
     Active Substance: AMISULPRIDE
     Indication: RESTLESSNESS
  6. BIPRETERAX N [Interacting]
     Active Substance: INDAPAMIDE\PERINDOPRIL ARGININE
     Indication: HYPERTENSIVE CRISIS
     Dosage: 1 DOSAGE FORMS DAILY; 5 MG / 1,25 MG 1?0?0?0
     Route: 048
     Dates: start: 20140913
  7. SOLIAN [Interacting]
     Active Substance: AMISULPRIDE
     Indication: SLEEP DISORDER
  8. METO?SUCCINAT [Interacting]
     Active Substance: METOPROLOL SUCCINATE
     Indication: HYPERTENSIVE CRISIS
     Dosage: 23.5 MILLIGRAM DAILY; 1?0?0?0
     Route: 048
     Dates: start: 20140913
  9. BIPRETERAX N [Interacting]
     Active Substance: INDAPAMIDE\PERINDOPRIL ARGININE
     Indication: ESSENTIAL HYPERTENSION

REACTIONS (3)
  - Drug interaction [Unknown]
  - Death [Fatal]
  - Multiple organ dysfunction syndrome [Fatal]

NARRATIVE: CASE EVENT DATE: 2021
